FAERS Safety Report 21101175 (Version 6)
Quarter: 2022Q4

REPORT INFORMATION
  Report Type: Spontaneous
  Country: US (occurrence: US)
  Receive Date: 20220719
  Receipt Date: 20221115
  Transmission Date: 20230113
  Serious: Yes (Other)
  Sender: FDA-Public Use
  Company Number: US-MALLINCKRODT-T202202453

PATIENT
  Sex: Female

DRUGS (6)
  1. H.P. ACTHAR [Suspect]
     Active Substance: CORTICOTROPIN
     Indication: Corneal oedema
     Dosage: 1 MILLILITER (80 UNITS), TWICE A WEEK
     Route: 058
     Dates: start: 201712
  2. H.P. ACTHAR [Suspect]
     Active Substance: CORTICOTROPIN
     Indication: Iris vascular disorder
     Dosage: UNK
     Route: 065
     Dates: start: 202101
  3. H.P. ACTHAR [Suspect]
     Active Substance: CORTICOTROPIN
     Indication: Ciliary body disorder
     Dosage: 1 MILLILITER (80 UNITS), TWICE A WEEK
     Route: 058
     Dates: start: 202112
  4. H.P. ACTHAR [Suspect]
     Active Substance: CORTICOTROPIN
     Indication: Corneal dystrophy
     Dosage: 1 MILLILITER (80 UNITS), TWICE A WEEK
     Route: 058
  5. H.P. ACTHAR [Suspect]
     Active Substance: CORTICOTROPIN
     Indication: Punctate keratitis
  6. H.P. ACTHAR [Suspect]
     Active Substance: CORTICOTROPIN
     Indication: Corneal degeneration

REACTIONS (9)
  - Rib fracture [Unknown]
  - Blindness [Not Recovered/Not Resolved]
  - COVID-19 [Unknown]
  - Fall [Unknown]
  - Mood swings [Not Recovered/Not Resolved]
  - Malaise [Unknown]
  - Weight increased [Unknown]
  - Therapy cessation [Unknown]
  - Product packaging quantity issue [Unknown]
